FAERS Safety Report 5645091-5 (Version None)
Quarter: 2008Q1

REPORT INFORMATION
  Report Type: 
  Country: None (occurrence: None)
  Receive Date: 20080131
  Receipt Date: 20071102
  Transmission Date: 20080703
  Serious: No
  Sender: FDA-Public Use
  Company Number: PHEH2007US14479

PATIENT
  Age: 55 Year
  Sex: Male

DRUGS (5)
  1. TEKTURNA [Suspect]
     Dosage: 150 MG, QD, ORAL
     Route: 048
  2. DIOVAN HCT [Concomitant]
  3. COREG [Concomitant]
  4. LASIX [Concomitant]
  5. EFFEXOR [Concomitant]

REACTIONS (1)
  - DIZZINESS [None]
